FAERS Safety Report 8965409 (Version 2)
Quarter: 2012Q4

REPORT INFORMATION
  Report Type: 
  Country: NL (occurrence: NL)
  Receive Date: 20121214
  Receipt Date: 20121220
  Transmission Date: 20130627
  Serious: Yes (Other)
  Sender: FDA-Public Use
  Company Number: PHHY2012NL114781

PATIENT

DRUGS (9)
  1. SPIRONOLACTONE [Suspect]
     Dosage: 50 mg, QD
     Route: 048
  2. SPIRONOLACTONE [Suspect]
     Dosage: 100 mg, QD
     Route: 048
     Dates: start: 201101, end: 20110218
  3. INSUMAN RAPID [Concomitant]
     Dosage: UNK
     Dates: start: 2008
  4. LANTUS [Concomitant]
     Dosage: UNK
     Dates: start: 2008
  5. ACETYLSALICYLZUUR [Concomitant]
     Dosage: 80 mg, UNK
     Dates: start: 2004
  6. PERSANTIN [Concomitant]
     Dosage: 200 mg, BID
  7. CHLOORTALIDON [Concomitant]
     Dosage: 50 mg, UNK
     Dates: start: 2002
  8. MAGNESIUM HYDROXIDE [Concomitant]
     Dosage: 724 mg, TID
  9. PULMICORT [Concomitant]
     Dosage: 400 ug, BID

REACTIONS (5)
  - Intestinal perforation [Not Recovered/Not Resolved]
  - Intestinal fistula [Not Recovered/Not Resolved]
  - Abdominal pain [Not Recovered/Not Resolved]
  - Product quality issue [None]
  - Product substitution issue [None]
